FAERS Safety Report 5754837-7 (Version None)
Quarter: 2008Q2

REPORT INFORMATION
  Report Type: 
  Country: None (occurrence: None)
  Receive Date: 20080527
  Receipt Date: 20080509
  Transmission Date: 20081010
  Serious: Yes (Other)
  Sender: FDA-Public Use
  Company Number: 2008EU000867

PATIENT
  Age: 9 Year
  Sex: Female

DRUGS (2)
  1. PROTOPIC [Suspect]
     Indication: DERMATITIS ATOPIC
     Dosage: 0.03% ,/D, TOPICAL;  0.1%, /D, TOPICAL
     Route: 061
  2. PREDNICARBATE(PREDNICARBATE) [Suspect]
     Indication: DERMATITIS ATOPIC
     Dosage: /D, TOPICAL
     Route: 061

REACTIONS (1)
  - MYCOSIS FUNGOIDES STAGE I [None]
